FAERS Safety Report 8396030-8 (Version None)
Quarter: 2012Q2

REPORT INFORMATION
  Report Type: 
  Country: None (occurrence: None)
  Receive Date: 20120530
  Receipt Date: 20120522
  Transmission Date: 20120825
  Serious: Yes (Hospitalization)
  Sender: FDA-Public Use
  Company Number: FR-ROCHE-1072746

PATIENT
  Age: 72 Year
  Sex: Male

DRUGS (4)
  1. SPIRIVA [Concomitant]
     Dates: start: 20060601
  2. SYMBICORT [Concomitant]
     Dosage: 400/12 MCG
     Dates: start: 20060601
  3. XOLAIR [Suspect]
     Indication: ASTHMA
     Route: 058
     Dates: start: 20110601, end: 20120401
  4. VENTOLIN [Concomitant]
     Dates: start: 20060601

REACTIONS (3)
  - INTERSTITIAL LUNG DISEASE [None]
  - ARTHRALGIA [None]
  - OEDEMA PERIPHERAL [None]
